FAERS Safety Report 10750479 (Version 1)
Quarter: 2015Q1

REPORT INFORMATION
  Report Type: Spontaneous
  Country: GB (occurrence: GB)
  Receive Date: 20150130
  Receipt Date: 20150130
  Transmission Date: 20150721
  Serious: Yes (Other)
  Sender: FDA-Public Use
  Company Number: GB-CIPLA LTD.-2015GB00633

PATIENT

DRUGS (1)
  1. RAMIPRIL. [Suspect]
     Active Substance: RAMIPRIL

REACTIONS (2)
  - Pityriasis rubra pilaris [Recovered/Resolved]
  - Malignant melanoma [Recovered/Resolved]
